FAERS Safety Report 17734748 (Version 1)
Quarter: 2020Q2

REPORT INFORMATION
  Report Type: Spontaneous
  Country: FR (occurrence: FR)
  Receive Date: 20200501
  Receipt Date: 20200501
  Transmission Date: 20200714
  Serious: Yes (Hospitalization)
  Sender: FDA-Public Use
  Company Number: FR-MYLANLABS-2020M1042627

PATIENT
  Age: 59 Year
  Sex: Female

DRUGS (6)
  1. LUMIRELAX                          /00047901/ [Suspect]
     Active Substance: METHOCARBAMOL
     Indication: PAIN
     Dosage: INCONNUE
     Route: 048
     Dates: start: 20200304, end: 20200310
  2. ACTISKENAN [Concomitant]
     Active Substance: MORPHINE SULFATE
     Dosage: 1 DOSAGE FORM, Q4H
     Route: 048
     Dates: start: 20200309, end: 20200313
  3. PARACETAMOL [Suspect]
     Active Substance: ACETAMINOPHEN
     Indication: PAIN
     Dosage: INCONNUE
     Route: 048
     Dates: start: 20200304, end: 20200310
  4. VENLAFAXINE [Concomitant]
     Active Substance: VENLAFAXINE HYDROCHLORIDE
     Dosage: 150 MILLIGRAM, QD
     Route: 048
  5. DICLOFENAC [Suspect]
     Active Substance: DICLOFENAC
     Indication: PAIN
     Dosage: INCONNUE
     Route: 048
     Dates: start: 20200302, end: 20200310
  6. SERESTA [Concomitant]
     Active Substance: OXAZEPAM
     Dosage: 1 DOSAGE FORM, QD
     Route: 048

REACTIONS (2)
  - Cholestasis [Recovering/Resolving]
  - Hepatocellular injury [Recovering/Resolving]

NARRATIVE: CASE EVENT DATE: 20200310
